FAERS Safety Report 5753647-4 (Version None)
Quarter: 2008Q2

REPORT INFORMATION
  Report Type: 
  Country: None (occurrence: None)
  Receive Date: 20080530
  Receipt Date: 20080521
  Transmission Date: 20081010
  Serious: Yes (Life-Threatening, Hospitalization)
  Sender: FDA-Public Use
  Company Number: GB-AVENTIS-200814822GDDC

PATIENT
  Age: 60 Year
  Sex: Female
  Weight: 110 kg

DRUGS (8)
  1. METRONIDAZOLE HCL [Suspect]
     Dosage: DOSE: UNK
     Dates: start: 20080426, end: 20080429
  2. CIPROFLOXACIN HCL [Suspect]
     Dosage: DOSE: UNK
     Dates: start: 20080426, end: 20080429
  3. WARFARIN SODIUM [Suspect]
     Dosage: DOSE: UNK
     Dates: end: 20080429
  4. BENDROFLUMETHIAZIDE [Concomitant]
     Route: 048
  5. BISOPROLOL [Concomitant]
     Route: 048
  6. CARBAMAZEPINE [Concomitant]
     Route: 048
  7. LOSARTAN POTASSIUM [Concomitant]
     Route: 048
     Dates: end: 20080423
  8. PANTOPRAZOLE [Concomitant]
     Route: 048

REACTIONS (4)
  - DRUG INTERACTION [None]
  - HAEMATOMA [None]
  - HAEMATOMA INFECTION [None]
  - INTERNATIONAL NORMALISED RATIO INCREASED [None]
